FAERS Safety Report 8593252-8 (Version None)
Quarter: 2012Q3

REPORT INFORMATION
  Report Type: 
  Country: None (occurrence: None)
  Receive Date: 20120814
  Receipt Date: 20120724
  Transmission Date: 20120928
  Serious: No
  Sender: FDA-Public Use
  Company Number: US-BAYER-2012-074978

PATIENT
  Age: 74 Year
  Sex: Female
  Weight: 46.712 kg

DRUGS (6)
  1. VITAMIN D [Concomitant]
  2. ALEVE (CAPLET) [Suspect]
     Indication: PAIN
     Dosage: 1 DF, BID, PRN
     Route: 048
  3. PREMARIN [Concomitant]
  4. DOXEPIN [Concomitant]
  5. TRAZODONE HYDROCHLORIDE [Concomitant]
  6. SYNTHROID [Concomitant]

REACTIONS (2)
  - CAPILLARY FRAGILITY [None]
  - CONTUSION [None]
